FAERS Safety Report 9913655 (Version 1)
Quarter: 2014Q1

REPORT INFORMATION
  Report Type: Spontaneous
  Country: US (occurrence: None)
  Receive Date: 20140218
  Receipt Date: 20140218
  Transmission Date: 20141002
  Serious: Yes (Death, Life-Threatening, Hospitalization)
  Sender: FDA-Public Use
  Company Number: VAL_02978_2014

PATIENT
  Age: 50 Year
  Sex: Female

DRUGS (2)
  1. METOPROLOL [Suspect]
     Indication: PRODUCT USED FOR UNKNOWN INDICATION
     Dosage: (80 TOTAL TABS OF METOPROLOL AND BUPROPION XL)
  2. BUPROPION 150 MG [Suspect]
     Indication: PRODUCT USED FOR UNKNOWN INDICATION
     Dosage: (80 TOTAL TABS OF METOPROLOL AND BUPROPION XL)

REACTIONS (5)
  - Overdose [None]
  - Bradycardia [None]
  - Hypotension [None]
  - Cardiac arrest [None]
  - Multi-organ failure [None]
